FAERS Safety Report 14858200 (Version 1)
Quarter: 2018Q2

REPORT INFORMATION
  Report Type: Spontaneous
  Country: US (occurrence: US)
  Receive Date: 20180508
  Receipt Date: 20180508
  Transmission Date: 20180711
  Serious: No
  Sender: FDA-Public Use
  Company Number: US-B.I. PHARMACEUTICALS,INC./RIDGEFIELD-2018-BI-023932

PATIENT
  Sex: Female

DRUGS (1)
  1. PRADAXA [Suspect]
     Active Substance: DABIGATRAN ETEXILATE MESYLATE
     Indication: ATRIAL FIBRILLATION
     Dosage: FORMULATION: CAPSULE;ADMINISTRATION CORRECT? NR(NOT REPORTEDACTION(S) TAKEN WITH PRODUCTNOT REPORTED
     Route: 048

REACTIONS (4)
  - Asthenia [Unknown]
  - Liver disorder [Unknown]
  - Flatulence [Unknown]
  - Abdominal pain upper [Unknown]
